FAERS Safety Report 9086765 (Version 6)
Quarter: 2013Q3

REPORT INFORMATION
  Report Type: Spontaneous
  Country: US (occurrence: US)
  Receive Date: 20130131
  Receipt Date: 20130913
  Transmission Date: 20140515
  Serious: Yes (Other)
  Sender: FDA-Public Use
  Company Number: US-PFIZER INC-2013036427

PATIENT
  Age: 71 Year
  Sex: Male
  Weight: 95.24 kg

DRUGS (11)
  1. SUTENT [Suspect]
     Indication: METASTATIC RENAL CELL CARCINOMA
     Dosage: 12.5 MG, 1 QD X 4 WEEKS- 2 WEEKS REST PRIOR TO NEXT CYCLE
     Route: 048
     Dates: start: 201208
  2. SUTENT [Suspect]
     Dosage: 50 MG, 1X/DAY
     Route: 048
     Dates: start: 201210, end: 201211
  3. SUTENT [Suspect]
     Dosage: 25 MG, UNK
     Route: 048
     Dates: start: 20130304, end: 20130331
  4. SUTENT [Suspect]
     Dosage: 50 MG, CYCLIC (DAILY FOR 4 WEEKS, FOLLOWED BY 2 WEEKS OFF))
     Dates: start: 20130528
  5. SUTENT [Suspect]
     Dosage: UNK, CYCLIC (3 INSTEAD OF 2 WK OFF)
  6. IMODIUM [Concomitant]
     Dosage: UNK
  7. DIOVANE [Concomitant]
     Indication: BLOOD PRESSURE
     Dosage: 160 MG, 1X/DAY
  8. GABAPENTIN [Concomitant]
     Dosage: UNK
  9. CITALOPRAM [Concomitant]
     Indication: ANXIETY
     Dosage: 40 MG, 1X/DAY
  10. CITALOPRAM [Concomitant]
     Indication: DEPRESSION
  11. LORTAB [Concomitant]
     Indication: PAIN IN EXTREMITY
     Dosage: UNK

REACTIONS (13)
  - Second primary malignancy [Unknown]
  - Sarcoma [Unknown]
  - Flatulence [Not Recovered/Not Resolved]
  - Diarrhoea [Recovering/Resolving]
  - Ocular hyperaemia [Unknown]
  - Dysgeusia [Unknown]
  - Insomnia [Recovering/Resolving]
  - Fatigue [Recovering/Resolving]
  - Hair colour changes [Unknown]
  - Yellow skin [Unknown]
  - Ocular icterus [Unknown]
  - Chromaturia [Unknown]
  - Depression [Unknown]
